FAERS Safety Report 6681263-9 (Version None)
Quarter: 2010Q2

REPORT INFORMATION
  Report Type: 
  Country: None (occurrence: None)
  Receive Date: 20100414
  Receipt Date: 20100402
  Transmission Date: 20101027
  Serious: Yes (Other)
  Sender: FDA-Public Use
  Company Number: US-ROCHE-696674

PATIENT

DRUGS (1)
  1. BEVACIZUMAB [Suspect]
     Indication: RENAL CANCER METASTATIC
     Dosage: FREQUENCY: OVER 30-90 MINUTES ON DAYS 1 AND 15. CYCLE =28 DAYS. LAST DOSE PRIOR ON 17 SEPTEMBER 2009
     Route: 042
     Dates: start: 20090806

REACTIONS (1)
  - BLOOD PHOSPHORUS DECREASED [None]
